FAERS Safety Report 20348793 (Version 2)
Quarter: 2022Q3

REPORT INFORMATION
  Report Type: Other
  Country: AU (occurrence: AU)
  Receive Date: 20220119
  Receipt Date: 20220720
  Transmission Date: 20221026
  Serious: Yes (Hospitalization)
  Sender: FDA-Public Use
  Company Number: AU-TOLMAR, INC.-22AU032470

PATIENT
  Sex: Male

DRUGS (3)
  1. ELIGARD [Suspect]
     Active Substance: LEUPROLIDE ACETATE
     Indication: Prostate cancer
     Dosage: 45 MILLIGRAM, Q 6 MONTH
  2. UNSPECIFIED INGREDIENT [Suspect]
     Active Substance: UNSPECIFIED INGREDIENT
     Indication: Product used for unknown indication
     Dosage: UNK
     Dates: start: 202111
  3. UNSPECIFIED INGREDIENT [Suspect]
     Active Substance: UNSPECIFIED INGREDIENT
     Indication: Product used for unknown indication
     Dosage: UNK

REACTIONS (6)
  - Pyrexia [Recovered/Resolved]
  - Fatigue [Not Recovered/Not Resolved]
  - Weight decreased [Unknown]
  - Constipation [Not Recovered/Not Resolved]
  - Hot flush [Not Recovered/Not Resolved]
  - Alopecia [Unknown]
